FAERS Safety Report 9436739 (Version 1)
Quarter: 2013Q3

REPORT INFORMATION
  Report Type: Spontaneous
  Country: US (occurrence: US)
  Receive Date: 20130802
  Receipt Date: 20130802
  Transmission Date: 20140515
  Serious: Yes (Hospitalization)
  Sender: FDA-Public Use
  Company Number: US-BAYER-2013-092310

PATIENT
  Age: 19 Year
  Sex: Female
  Weight: 96 kg

DRUGS (18)
  1. YAZ [Suspect]
     Indication: CONTRACEPTION
  2. YAZ [Suspect]
     Indication: MENSTRUATION IRREGULAR
  3. METFORMIN [Concomitant]
  4. PAROXETINE [Concomitant]
     Indication: MIGRAINE
  5. VIGAMOX [Concomitant]
     Dosage: 0.5 UNK, UNK
     Route: 047
  6. CONCERTA [Concomitant]
     Indication: MIGRAINE
  7. CONCERTA [Concomitant]
     Indication: ATTENTION DEFICIT/HYPERACTIVITY DISORDER
  8. RIBOFLAVIN [Concomitant]
  9. MAGNESIUM [Concomitant]
  10. LORTAB [Concomitant]
  11. FLEXERIL [Concomitant]
  12. PAXIL [Concomitant]
  13. MULTIVITAMINS [Concomitant]
  14. DEMEROL [Concomitant]
  15. PHENERGAN [Concomitant]
  16. INDOCIN [Concomitant]
  17. XANAX [Concomitant]
  18. CYMBALTA [Concomitant]

REACTIONS (1)
  - Pulmonary embolism [Recovered/Resolved]
